FAERS Safety Report 7288036-7 (Version None)
Quarter: 2011Q1

REPORT INFORMATION
  Report Type: 
  Country: None (occurrence: None)
  Receive Date: 20110211
  Receipt Date: 20110202
  Transmission Date: 20110831
  Serious: Yes (Hospitalization)
  Sender: FDA-Public Use
  Company Number: PHHO2010US05532

PATIENT
  Sex: Female
  Weight: 55 kg

DRUGS (13)
  1. WELLBUTRIN [Suspect]
  2. OXYCODONE HCL [Suspect]
  3. LEXAPRO [Suspect]
  4. CLINDAMYCIN [Suspect]
  5. VITAMIN D [Concomitant]
  6. BLINDED ACLASTA/ZOLEDRONATE [Suspect]
     Dosage: DOUBLE BLIND
     Route: 042
     Dates: start: 20100106, end: 20100106
  7. CALCIUM [Concomitant]
  8. BLINDED NO TREATMENT RECEIVED [Suspect]
     Dosage: DOUBLE BLIND
     Route: 042
     Dates: start: 20100106, end: 20100106
  9. DITROPAN [Suspect]
  10. CELEXA [Suspect]
  11. BLINDED PLACEBO [Suspect]
     Dosage: DOUBLE BLIND
     Route: 042
     Dates: start: 20100106, end: 20100106
  12. METHYLPHENIDATE [Suspect]
  13. ZYRTEC [Suspect]

REACTIONS (9)
  - CEREBROVASCULAR ACCIDENT [None]
  - INAPPROPRIATE ANTIDIURETIC HORMONE SECRETION [None]
  - HYPONATRAEMIA [None]
  - DELIRIUM [None]
  - FALL [None]
  - ENCEPHALOPATHY [None]
  - WHITE BLOOD CELL COUNT INCREASED [None]
  - URINARY TRACT INFECTION BACTERIAL [None]
  - APHASIA [None]
